FAERS Safety Report 7165254-X (Version None)
Quarter: 2010Q4

REPORT INFORMATION
  Report Type: 
  Country: None (occurrence: None)
  Receive Date: 20101215
  Receipt Date: 20091230
  Transmission Date: 20110411
  Serious: No
  Sender: FDA-Public Use
  Company Number: US-AMGEN-KDL383224

PATIENT

DRUGS (8)
  1. ENBREL [Suspect]
     Indication: RHEUMATOID ARTHRITIS
     Dosage: 50 MG, QWK
     Route: 058
     Dates: start: 20090626
  2. HYDROXYCHLOROQUINE SULFATE [Suspect]
     Dosage: 400 MG, QD
     Dates: start: 20070501, end: 20100106
  3. DULOXETINE HYDROCHLORIDE [Concomitant]
  4. ESOMEPRAZOLE MAGNESIUM [Concomitant]
  5. CELECOXIB [Concomitant]
  6. TRAZODONE HCL [Concomitant]
  7. FLUTICASONE/SALMETEROL [Concomitant]
  8. ALBUTEROL SULFATE [Concomitant]

REACTIONS (7)
  - ABDOMINAL PAIN UPPER [None]
  - H1N1 INFLUENZA [None]
  - HEADACHE [None]
  - JOINT DESTRUCTION [None]
  - MUSCLE SPASMS [None]
  - RHEUMATOID ARTHRITIS [None]
  - UPPER RESPIRATORY TRACT INFECTION [None]
